FAERS Safety Report 8258581-6 (Version None)
Quarter: 2012Q2

REPORT INFORMATION
  Report Type: 
  Country: None (occurrence: None)
  Receive Date: 20120403
  Receipt Date: 20120403
  Transmission Date: 20120825
  Serious: Yes (Death)
  Sender: FDA-Public Use
  Company Number: None

PATIENT
  Age: 87 Year
  Sex: Female

DRUGS (10)
  1. REVLIMID [Suspect]
     Indication: MULTIPLE MYELOMA
     Dosage: REVLIMID 10 MG DAILY X14D/28D ORALLY
     Route: 048
     Dates: start: 20110401, end: 20110601
  2. REVLIMID [Suspect]
     Indication: MULTIPLE MYELOMA
     Dosage: REVLIMID 10 MG DAILY X14D/28D ORALLY
     Route: 048
     Dates: start: 20110901, end: 20111001
  3. OMEPRAZOLE [Concomitant]
  4. LATANOPROST [Concomitant]
  5. GABAPENTIN [Concomitant]
  6. K-TAB [Concomitant]
  7. ALPRAZOLAM [Concomitant]
  8. OXYCODONE HCL [Concomitant]
  9. LOVASTATIN [Concomitant]
  10. HYOSCYAMINE [Concomitant]

REACTIONS (1)
  - DEATH [None]
